FAERS Safety Report 18368525 (Version 3)
Quarter: 2021Q1

REPORT INFORMATION
  Report Type: Report from Study
  Country: None (occurrence: US)
  Receive Date: 20201010
  Receipt Date: 20210218
  Transmission Date: 20210419
  Serious: Yes (Other)
  Sender: FDA-Public Use
  Company Number: US-ABBVIE-20K-163-3595385-00

PATIENT
  Age: 68 Year
  Sex: Male
  Weight: 64.92 kg

DRUGS (9)
  1. ASPIRIN. [Concomitant]
     Active Substance: ASPIRIN
     Indication: CARDIOVASCULAR EVENT PROPHYLAXIS
  2. VENCLEXTA [Suspect]
     Active Substance: VENETOCLAX
     Dosage: MAINTENANCE DOSE AFTER RAMP UP
     Route: 048
     Dates: start: 20190312, end: 202011
  3. VENCLEXTA [Suspect]
     Active Substance: VENETOCLAX
     Indication: B-CELL SMALL LYMPHOCYTIC LYMPHOMA
     Dosage: RAMP UP DOSING
     Route: 048
     Dates: start: 20190212, end: 20190218
  4. BENDAMUSTINE [Concomitant]
     Active Substance: BENDAMUSTINE
     Indication: B-CELL SMALL LYMPHOCYTIC LYMPHOMA
     Dosage: EVERY 28 DAYS FOR A TOTAL OF 6 MONTHS
     Route: 042
     Dates: start: 2015
  5. VENCLEXTA [Suspect]
     Active Substance: VENETOCLAX
     Route: 048
     Dates: start: 202011, end: 20210212
  6. RITUXAN [Suspect]
     Active Substance: RITUXIMAB
     Indication: B-CELL SMALL LYMPHOCYTIC LYMPHOMA
     Dosage: EVERY 28 DAYS FOR A TOTAL OF 6 MONTHS
     Route: 042
     Dates: start: 2015
  7. VENCLEXTA [Suspect]
     Active Substance: VENETOCLAX
     Dosage: RAMP UP DOSING
     Route: 048
     Dates: start: 20190226, end: 20190304
  8. VENCLEXTA [Suspect]
     Active Substance: VENETOCLAX
     Dosage: RAMP UP DOSING
     Route: 048
     Dates: start: 20190219, end: 20190225
  9. VENCLEXTA [Suspect]
     Active Substance: VENETOCLAX
     Route: 048
     Dates: start: 20190305, end: 20190311

REACTIONS (4)
  - Alopecia [Not Recovered/Not Resolved]
  - Squamous cell carcinoma [Recovered/Resolved]
  - Squamous cell carcinoma [Recovered/Resolved]
  - Gynaecomastia [Not Recovered/Not Resolved]

NARRATIVE: CASE EVENT DATE: 2019
